FAERS Safety Report 4812125-7 (Version None)
Quarter: 2005Q4

REPORT INFORMATION
  Report Type: 
  Country: None (occurrence: None)
  Receive Date: 20051028
  Receipt Date: 20040412
  Transmission Date: 20060501
  Serious: No
  Sender: FDA-Public Use
  Company Number: US-GLAXOSMITHKLINE-A0506819A

PATIENT
  Age: 92 Year
  Sex: Female

DRUGS (7)
  1. ADVAIR DISKUS 100/50 [Suspect]
     Indication: ASTHMA
     Dosage: 1PUFF TWICE PER DAY
     Route: 055
  2. SINGULAIR [Concomitant]
  3. FOSAMAX [Concomitant]
  4. ASPIRIN [Concomitant]
  5. ZIAC [Concomitant]
  6. ZIAC [Concomitant]
  7. PERSANTIN [Concomitant]

REACTIONS (3)
  - DYSPHONIA [None]
  - GINGIVAL PAIN [None]
  - GINGIVITIS [None]
